FAERS Safety Report 8233671-2 (Version None)
Quarter: 2012Q1

REPORT INFORMATION
  Report Type: 
  Country: None (occurrence: None)
  Receive Date: 20120326
  Receipt Date: 20120321
  Transmission Date: 20120608
  Serious: Yes (Hospitalization, Other)
  Sender: FDA-Public Use
  Company Number: PHFR2012GB000698

PATIENT
  Sex: Male

DRUGS (5)
  1. CLOZARIL [Suspect]
     Dosage: 350 MG, DAILY
     Route: 050
     Dates: start: 20120101
  2. LACTULOSE [Concomitant]
     Indication: CONSTIPATION
     Dosage: 40 ML
     Route: 048
  3. SENNA [Concomitant]
     Indication: CONSTIPATION
     Dosage: UNK
     Route: 048
  4. CLOZARIL [Suspect]
     Indication: SCHIZOPHRENIA
     Dosage: 650 MG, DALIY
     Route: 048
     Dates: start: 19980710
  5. FERROUS SULFATE TAB [Concomitant]
     Indication: ANAEMIA
     Dosage: 400 MG
     Route: 048

REACTIONS (4)
  - PNEUMONIA [None]
  - FALL [None]
  - CONVULSION [None]
  - SOMNOLENCE [None]
